FAERS Safety Report 13356668 (Version 1)
Quarter: 2017Q1

REPORT INFORMATION
  Report Type: Spontaneous
  Country: IN (occurrence: IN)
  Receive Date: 20170321
  Receipt Date: 20170321
  Transmission Date: 20170429
  Serious: Yes (Congenital Anomaly, Other)
  Sender: FDA-Public Use
  Company Number: IN-TOLMAR, INC.-TOLG20170100

PATIENT
  Sex: Female

DRUGS (2)
  1. LEVETIRACETAM. [Suspect]
     Active Substance: LEVETIRACETAM
     Indication: FOETAL EXPOSURE DURING PREGNANCY
     Route: 064
  2. CARBAMAZEPINE. [Suspect]
     Active Substance: CARBAMAZEPINE
     Indication: FOETAL EXPOSURE DURING PREGNANCY
     Route: 064

REACTIONS (6)
  - Accessory auricle [Not Recovered/Not Resolved]
  - Spine malformation [Unknown]
  - Teratogenicity [Not Recovered/Not Resolved]
  - Cleft palate [Not Recovered/Not Resolved]
  - Selective eating disorder [Not Recovered/Not Resolved]
  - Dysmorphism [Not Recovered/Not Resolved]
